FAERS Safety Report 15996654 (Version 2)
Quarter: 2019Q1

REPORT INFORMATION
  Report Type: Spontaneous
  Country: US (occurrence: US)
  Receive Date: 20190222
  Receipt Date: 20190325
  Transmission Date: 20190418
  Serious: Yes (Death)
  Sender: FDA-Public Use
  Company Number: US-CELGENEUS-USA-20190205412

PATIENT
  Age: 48 Year
  Sex: Male

DRUGS (2)
  1. ABRAXANE [Suspect]
     Active Substance: PACLITAXEL
     Indication: LUNG NEOPLASM MALIGNANT
     Dosage: 100 MILLIGRAM
     Route: 065
     Dates: start: 20190101, end: 20190228
  2. ABRAXANE [Suspect]
     Active Substance: PACLITAXEL
     Indication: COLON CANCER
     Dosage: 237.5 MILLIGRAM
     Route: 041
     Dates: start: 20180731, end: 20181130

REACTIONS (1)
  - Death [Fatal]

NARRATIVE: CASE EVENT DATE: 20190310
